FAERS Safety Report 5905580-2 (Version None)
Quarter: 2008Q4

REPORT INFORMATION
  Report Type: 
  Country: None (occurrence: None)
  Receive Date: 20081001
  Receipt Date: 20081001
  Transmission Date: 20090506
  Serious: No
  Sender: FDA-Public Use
  Company Number: None

PATIENT
  Age: 88 Year
  Sex: Male

DRUGS (1)
  1. FUROSEMIDE [Suspect]
     Indication: RENAL IMPAIRMENT
     Dosage: 20 MG EVERY DAY PO
     Route: 048
     Dates: start: 20080202

REACTIONS (5)
  - DEHYDRATION [None]
  - DIARRHOEA [None]
  - HYPOPHAGIA [None]
  - POLYURIA [None]
  - RENAL FAILURE ACUTE [None]
